FAERS Safety Report 19685583 (Version 1)
Quarter: 2021Q3

REPORT INFORMATION
  Report Type: Other
  Country: US (occurrence: US)
  Receive Date: 20210811
  Receipt Date: 20210811
  Transmission Date: 20211014
  Serious: Yes (Hospitalization, Other)
  Sender: FDA-Public Use
  Company Number: US-ROCHE-2884989

PATIENT
  Sex: Female

DRUGS (17)
  1. NITROGLYCERINE [Concomitant]
     Active Substance: NITROGLYCERIN
     Route: 061
     Dates: start: 20210410
  2. ACTEMRA [Suspect]
     Active Substance: TOCILIZUMAB
  3. ACTEMRA [Suspect]
     Active Substance: TOCILIZUMAB
  4. VITAMIN C [Concomitant]
     Active Substance: ASCORBIC ACID
     Dosage: AT BEDTIME AS NEEDED
     Route: 048
     Dates: start: 20210411
  5. KEPPRA [Concomitant]
     Active Substance: LEVETIRACETAM
     Route: 048
     Dates: start: 20191227
  6. DITROPAN XL [Concomitant]
     Active Substance: OXYBUTYNIN CHLORIDE
     Route: 048
     Dates: start: 20210518
  7. NEURONTIN [Concomitant]
     Active Substance: GABAPENTIN
     Route: 048
     Dates: start: 20210411
  8. INDERAL [Concomitant]
     Active Substance: PROPRANOLOL HYDROCHLORIDE
     Route: 048
     Dates: start: 20210411
  9. MAGNESIUM [Concomitant]
     Active Substance: MAGNESIUM
     Route: 048
  10. ZOLOFT [Concomitant]
     Active Substance: SERTRALINE HYDROCHLORIDE
     Route: 048
     Dates: start: 20210510
  11. ACTEMRA [Suspect]
     Active Substance: TOCILIZUMAB
     Indication: DEMYELINATION
     Dosage: 162/0.9ML,
     Route: 058
     Dates: start: 20210525
  12. TYLENOL [Concomitant]
     Active Substance: ACETAMINOPHEN
     Dosage: 500 MG AT BEDTIME
     Route: 048
  13. LIORESAL [Concomitant]
     Active Substance: BACLOFEN
  14. VALIUM [Concomitant]
     Active Substance: DIAZEPAM
     Route: 048
     Dates: start: 20210518
  15. ATARAX [Concomitant]
     Active Substance: HYDROXYZINE HYDROCHLORIDE
     Route: 048
     Dates: start: 20210510
  16. METHENAMINE HIPPURATE. [Concomitant]
     Active Substance: METHENAMINE HIPPURATE
     Route: 048
     Dates: start: 20210411
  17. SEREVENT DISKUS [Concomitant]
     Active Substance: SALMETEROL XINAFOATE
     Dosage: 50 MCG/DOSE
     Dates: start: 20190214

REACTIONS (4)
  - Condition aggravated [Unknown]
  - Demyelination [Unknown]
  - Paralysis [Unknown]
  - Treatment noncompliance [Unknown]
